FAERS Safety Report 9439701 (Version 1)
Quarter: 2013Q3

REPORT INFORMATION
  Report Type: Spontaneous
  Country: US (occurrence: US)
  Receive Date: 20130805
  Receipt Date: 20130805
  Transmission Date: 20140515
  Serious: No
  Sender: FDA-Public Use
  Company Number: US-PFIZER INC-2013226077

PATIENT
  Age: 79 Year
  Sex: Male
  Weight: 88.44 kg

DRUGS (3)
  1. ATORVASTATIN CALCIUM [Suspect]
     Indication: HYPERLIPIDAEMIA
     Dosage: 20 MG, DAILY
     Dates: start: 201201
  2. MIDODRINE [Concomitant]
     Indication: HYPOTENSION
     Dosage: 10 MG, AS NEEDED
  3. SODIUM CHLORIDE [Concomitant]
     Indication: HYPOTENSION
     Dosage: 1 G, AS NEEDED
     Route: 048

REACTIONS (1)
  - Muscle disorder [Unknown]
